FAERS Safety Report 6792873-2 (Version None)
Quarter: 2010Q2

REPORT INFORMATION
  Report Type: 
  Country: None (occurrence: None)
  Receive Date: 20100624
  Receipt Date: 20081206
  Transmission Date: 20101027
  Serious: No
  Sender: FDA-Public Use
  Company Number: US-PFIZER INC-2008091958

PATIENT
  Age: 66 Year
  Sex: Female
  Weight: 55.34 kg

DRUGS (7)
  1. FLUCONAZOLE [Suspect]
     Indication: ONYCHOMYCOSIS
     Route: 048
     Dates: start: 20080501, end: 20080918
  2. NASAL PREPARATIONS [Concomitant]
  3. VITAMINS [Concomitant]
  4. SUDAFED 12 HOUR [Concomitant]
  5. BENADRYL [Concomitant]
  6. TYLENOL [Concomitant]
     Indication: ARTHRITIS
  7. ACCUPRIL [Concomitant]

REACTIONS (4)
  - ALOPECIA EFFLUVIUM [None]
  - DIZZINESS [None]
  - DRUG EFFECT DECREASED [None]
  - WEIGHT DECREASED [None]
